FAERS Safety Report 4384512-5 (Version None)
Quarter: 2004Q2

REPORT INFORMATION
  Report Type: 
  Country: None (occurrence: None)
  Receive Date: 20040610
  Receipt Date: 20040330
  Transmission Date: 20050107
  Serious: No
  Sender: FDA-Public Use
  Company Number: US-JNJFOC-20040102697

PATIENT
  Age: 49 Year
  Sex: Female
  Weight: 92.9874 kg

DRUGS (2)
  1. NATRECOR [Suspect]
     Indication: ACCIDENTAL EXPOSURE
     Dosage: CONTACT EXPOSURE TO EYES
     Dates: start: 20040101, end: 20040101
  2. PREVACID [Concomitant]

REACTIONS (7)
  - ACCIDENTAL EXPOSURE [None]
  - EPISTAXIS [None]
  - HEADACHE [None]
  - LACRIMATION INCREASED [None]
  - NASAL DISORDER [None]
  - PHARYNGITIS [None]
  - SINUS DISORDER [None]
